FAERS Safety Report 18573807 (Version 1)
Quarter: 2020Q4

REPORT INFORMATION
  Report Type: Spontaneous
  Country: JP (occurrence: JP)
  Receive Date: 20201203
  Receipt Date: 20201203
  Transmission Date: 20210114
  Serious: Yes (Hospitalization)
  Sender: FDA-Public Use
  Company Number: JP-SA-2020SA346680

PATIENT

DRUGS (6)
  1. PYDOXAL [Suspect]
     Active Substance: PYRIDOXAL
     Dosage: UNK
  2. ISCOTIN [Concomitant]
     Active Substance: ISONIAZID
     Indication: ATYPICAL MYCOBACTERIAL INFECTION
  3. RIFADIN [Suspect]
     Active Substance: RIFAMPIN
     Indication: ATYPICAL MYCOBACTERIAL INFECTION
  4. CRAVIT [Suspect]
     Active Substance: LEVOFLOXACIN
     Indication: ATYPICAL MYCOBACTERIAL INFECTION
  5. GENINAX [Concomitant]
     Active Substance: GARENOXACIN MESYLATE
  6. CLARITH [Concomitant]
     Active Substance: CLARITHROMYCIN

REACTIONS (8)
  - Pyrexia [Recovering/Resolving]
  - Hypoaesthesia [Unknown]
  - Weight increased [Recovering/Resolving]
  - Nephritis [Recovering/Resolving]
  - Drug eruption [Unknown]
  - Oedema [Recovering/Resolving]
  - Oropharyngeal pain [Recovering/Resolving]
  - Nausea [Recovering/Resolving]
